FAERS Safety Report 9565013 (Version 1)
Quarter: 2013Q3

REPORT INFORMATION
  Report Type: Report from Study
  Country: VE (occurrence: VE)
  Receive Date: 20130930
  Receipt Date: 20130930
  Transmission Date: 20140515
  Serious: Yes (Other)
  Sender: FDA-Public Use
  Company Number: VE-ABBVIE-13P-178-1152652-00

PATIENT
  Sex: Female
  Weight: 59 kg

DRUGS (2)
  1. HUMIRA [Suspect]
     Indication: RHEUMATOID ARTHRITIS
     Route: 058
     Dates: start: 20091208, end: 201308
  2. HUMIRA [Suspect]
     Route: 058
     Dates: start: 20130926

REACTIONS (2)
  - Umbilical hernia [Recovered/Resolved]
  - Cholelithiasis [Recovered/Resolved]
